FAERS Safety Report 23686220 (Version 3)
Quarter: 2024Q2

REPORT INFORMATION
  Report Type: Spontaneous
  Country: BR (occurrence: BR)
  Receive Date: 20240329
  Receipt Date: 20240521
  Transmission Date: 20240715
  Serious: Yes (Disabling, Other)
  Sender: FDA-Public Use
  Company Number: BR-002147023-NVSC2024BR066796

PATIENT
  Sex: Male
  Weight: 78 kg

DRUGS (2)
  1. TRILEPTAL [Suspect]
     Active Substance: OXCARBAZEPINE
     Indication: Epilepsy
     Dosage: UNK (CURRENTLY, THE DOSAGE IS OF 03 TABLET OF 300 MG)
     Route: 065
     Dates: start: 2008
  2. CLOBAZAM [Concomitant]
     Active Substance: CLOBAZAM
     Indication: Product used for unknown indication
     Dosage: 20 MG, QD
     Route: 048
     Dates: start: 2008

REACTIONS (4)
  - Fracture [Recovered/Resolved with Sequelae]
  - Injury [Unknown]
  - Osteoporosis [Recovering/Resolving]
  - Bone density decreased [Unknown]

NARRATIVE: CASE EVENT DATE: 20190101
